FAERS Safety Report 17426090 (Version 2)
Quarter: 2020Q1

REPORT INFORMATION
  Report Type: Report from Study
  Country: None (occurrence: US)
  Receive Date: 20200218
  Receipt Date: 20200319
  Transmission Date: 20200409
  Serious: Yes (Hospitalization, Other)
  Sender: FDA-Public Use
  Company Number: US-ABBVIE-20K-163-3276286-00

PATIENT
  Age: 56 Year
  Sex: Female

DRUGS (2)
  1. HUMIRA [Suspect]
     Active Substance: ADALIMUMAB
     Indication: PSORIATIC ARTHROPATHY
     Route: 058
     Dates: start: 202002
  2. HUMIRA [Suspect]
     Active Substance: ADALIMUMAB
     Indication: PSORIATIC ARTHROPATHY
     Route: 058
     Dates: start: 2017

REACTIONS (16)
  - Loss of personal independence in daily activities [Unknown]
  - Joint stiffness [Not Recovered/Not Resolved]
  - Arthralgia [Not Recovered/Not Resolved]
  - Knee arthroplasty [Unknown]
  - Appendicitis [Unknown]
  - Spinal disorder [Unknown]
  - Rash [Recovering/Resolving]
  - Depression [Unknown]
  - Rhinorrhoea [Unknown]
  - Nail infection [Unknown]
  - Anxiety [Unknown]
  - Groin infection [Recovering/Resolving]
  - Pain [Not Recovered/Not Resolved]
  - Hypersensitivity [Unknown]
  - Joint swelling [Not Recovered/Not Resolved]
  - Gait disturbance [Unknown]

NARRATIVE: CASE EVENT DATE: 201910
